FAERS Safety Report 7735287-0 (Version None)
Quarter: 2011Q3

REPORT INFORMATION
  Report Type: 
  Country: None (occurrence: None)
  Receive Date: 20110907
  Receipt Date: 20110829
  Transmission Date: 20111222
  Serious: Yes (Other)
  Sender: FDA-Public Use
  Company Number: US-SANOFI-AVENTIS-2011SA055592

PATIENT
  Sex: Male

DRUGS (2)
  1. SOLOSTAR [Suspect]
     Dates: start: 20100601
  2. LANTUS [Suspect]
     Dosage: DOSE:30 UNIT(S)
     Route: 058
     Dates: start: 20100601

REACTIONS (2)
  - INJECTION SITE PAIN [None]
  - BONE MARROW TRANSPLANT [None]
